FAERS Safety Report 9507269 (Version 1)
Quarter: 2013Q1

REPORT INFORMATION
  Report Type: Spontaneous
  Country: US (occurrence: None)
  Receive Date: 20130305
  Receipt Date: 20130305
  Transmission Date: 20140127
  Serious: Yes (Other)
  Sender: FDA-Public Use
  Company Number: 163-21880-12082830

PATIENT
  Age: 62 Year
  Sex: Female

DRUGS (2)
  1. REVLIMID (LENALIDOMIDE) (CAPSULES) [Suspect]
     Indication: PLASMA CELL MYELOMA
     Route: 048
     Dates: start: 20071114
  2. VELCADE BORTEZOMIB) [Suspect]
     Indication: PRODUCT USED FOR UNKNOWN INDICATION

REACTIONS (5)
  - Drug effect increased [None]
  - Neuropathy peripheral [None]
  - Drug ineffective [None]
  - White blood cell count decreased [None]
  - Platelet count decreased [None]
